FAERS Safety Report 15167529 (Version 4)
Quarter: 2018Q4

REPORT INFORMATION
  Report Type: Spontaneous
  Country: US (occurrence: US)
  Receive Date: 20180719
  Receipt Date: 20181015
  Transmission Date: 20190204
  Serious: Yes (Death, Hospitalization, Other)
  Sender: FDA-Public Use
  Company Number: US-ACTELION-A-NJ2018-175643

PATIENT
  Age: 73 Year
  Sex: Female
  Weight: 72.56 kg

DRUGS (9)
  1. XARELTO [Concomitant]
     Active Substance: RIVAROXABAN
     Dosage: 20 MG, QD
     Route: 048
  2. VELETRI [Suspect]
     Active Substance: EPOPROSTENOL
     Indication: PULMONARY HYPERTENSION
     Dosage: UNK
     Route: 042
  3. NORVASC [Concomitant]
     Active Substance: AMLODIPINE BESYLATE
     Indication: HYPERTENSION
     Dosage: 5 MG, QD
     Route: 048
  4. GABAPENTIN. [Concomitant]
     Active Substance: GABAPENTIN
     Dosage: 100 MG, TID
     Route: 048
  5. OPSUMIT [Suspect]
     Active Substance: MACITENTAN
     Indication: PULMONARY HYPERTENSION
     Dosage: UNK
     Route: 048
  6. SILDENAFIL. [Concomitant]
     Active Substance: SILDENAFIL
     Dosage: 20 MG, TID
     Route: 048
  7. OPSUMIT [Suspect]
     Active Substance: MACITENTAN
     Dosage: 10 MG, QD
     Route: 048
  8. OXYCODONE [Concomitant]
     Active Substance: OXYCODONE
     Dosage: 15 MG, Q12HRS
     Route: 048
  9. OXYGEN. [Concomitant]
     Active Substance: OXYGEN

REACTIONS (27)
  - Dyspnoea [Recovered/Resolved]
  - Pulmonary hypertension [Unknown]
  - Hepatitis [Unknown]
  - Liver function test increased [Unknown]
  - Electrocardiogram abnormal [Unknown]
  - Flatulence [Recovered/Resolved]
  - Haematoma [Recovering/Resolving]
  - Groin pain [Recovering/Resolving]
  - Death [Fatal]
  - Gastrointestinal obstruction [Unknown]
  - Eructation [Recovered/Resolved]
  - Abdominal pain upper [Unknown]
  - Vomiting [Unknown]
  - Abdominal distension [Recovered/Resolved]
  - Blood bilirubin increased [Unknown]
  - Gallbladder disorder [Unknown]
  - Cardiomegaly [Unknown]
  - Nephrolithiasis [Unknown]
  - Intervertebral disc degeneration [Unknown]
  - Breast cancer recurrent [Unknown]
  - Chronic respiratory failure [Unknown]
  - Nephropathy [Unknown]
  - Scoliosis [Unknown]
  - Spinal osteoarthritis [Unknown]
  - Lumbar spinal stenosis [Unknown]
  - Pulmonary mass [Unknown]
  - Pulmonary embolism [Unknown]

NARRATIVE: CASE EVENT DATE: 201806
